FAERS Safety Report 18071598 (Version 1)
Quarter: 2020Q3

REPORT INFORMATION
  Report Type: Report from Study
  Country: US (occurrence: US)
  Receive Date: 20200727
  Receipt Date: 20200727
  Transmission Date: 20201103
  Serious: Yes (Other)
  Sender: FDA-Public Use
  Company Number: US-ASTELLAS-2020US023977

PATIENT
  Age: 70 Year
  Sex: Male

DRUGS (1)
  1. MIRABEGRON [Suspect]
     Active Substance: MIRABEGRON
     Indication: PRODUCT USED FOR UNKNOWN INDICATION
     Dosage: UNK UNK, UNKNOWN FREQ.
     Route: 048
     Dates: end: 20200704

REACTIONS (4)
  - Discomfort [Unknown]
  - Nocturia [Unknown]
  - Insomnia [Unknown]
  - Sinus disorder [Unknown]

NARRATIVE: CASE EVENT DATE: 20200704
